FAERS Safety Report 7844168-3 (Version None)
Quarter: 2011Q4

REPORT INFORMATION
  Report Type: 
  Country: None (occurrence: None)
  Receive Date: 20111025
  Receipt Date: 20111011
  Transmission Date: 20120403
  Serious: Yes (Hospitalization, Disabling, Other)
  Sender: FDA-Public Use
  Company Number: US-ELI_LILLY_AND_COMPANY-US201110003394

PATIENT
  Sex: Female

DRUGS (11)
  1. METOPROLOL TARTRATE [Concomitant]
  2. POTASSIUM [Concomitant]
  3. FUROSEMIDE [Concomitant]
  4. EVISTA [Suspect]
     Indication: OSTEOPOROSIS
     Dosage: 60 MG, UNK
     Dates: start: 20090101
  5. TOPAMAX [Concomitant]
  6. ACIPHEX [Concomitant]
  7. TRICOR [Concomitant]
  8. CALCIUM CITRATE W/VITAMIN D NOS [Concomitant]
  9. ZETIA [Concomitant]
  10. TRIAMTERENE [Concomitant]
  11. ASPIRIN [Concomitant]

REACTIONS (2)
  - BENIGN OVARIAN TUMOUR [None]
  - HAEMORRHAGIC STROKE [None]
